FAERS Safety Report 6878703-9 (Version None)
Quarter: 2010Q3

REPORT INFORMATION
  Report Type: 
  Country: None (occurrence: None)
  Receive Date: 20100728
  Receipt Date: 20100722
  Transmission Date: 20110219
  Serious: Yes (Other)
  Sender: FDA-Public Use
  Company Number: B0667260A

PATIENT
  Age: 73 Year
  Sex: Female

DRUGS (1)
  1. RELAFEN [Suspect]
     Dosage: 1TAB PER DAY
     Route: 048
     Dates: start: 20100527, end: 20100527

REACTIONS (3)
  - DIZZINESS [None]
  - HAEMATEMESIS [None]
  - PRODUCT QUALITY ISSUE [None]
